FAERS Safety Report 9267337 (Version 1)
Quarter: 2013Q2

REPORT INFORMATION
  Report Type: Spontaneous
  Country: US (occurrence: US)
  Receive Date: 20130502
  Receipt Date: 20130502
  Transmission Date: 20140414
  Serious: No
  Sender: FDA-Public Use
  Company Number: US-TEVA-400983USA

PATIENT
  Age: 64 Year
  Sex: Female
  Weight: 72.64 kg

DRUGS (3)
  1. NUVIGIL [Suspect]
     Indication: FATIGUE
     Route: 048
  2. ALPRAZOLAM [Concomitant]
     Indication: ANXIETY
  3. CARBIDOPA W/LEVODOPA [Concomitant]
     Indication: RESTLESS LEGS SYNDROME

REACTIONS (2)
  - Fatigue [Not Recovered/Not Resolved]
  - Off label use [Not Recovered/Not Resolved]
